FAERS Safety Report 25196253 (Version 1)
Quarter: 2025Q2

REPORT INFORMATION
  Report Type: Report from Study
  Country: CA (occurrence: CA)
  Receive Date: 20250415
  Receipt Date: 20250415
  Transmission Date: 20250716
  Serious: Yes (Hospitalization, Other)
  Sender: TAKEDA
  Company Number: CA-TAKEDA-2024TUS019971

PATIENT
  Sex: Male

DRUGS (12)
  1. VEDOLIZUMAB [Suspect]
     Active Substance: VEDOLIZUMAB
     Indication: Colitis ulcerative
  2. VEDOLIZUMAB [Suspect]
     Active Substance: VEDOLIZUMAB
     Indication: Colitis ulcerative
     Dosage: 108 MILLIGRAM, Q2WEEKS
     Dates: start: 20240501
  3. PREDNISONE [Suspect]
     Active Substance: PREDNISONE
     Indication: Product used for unknown indication
  4. MESALAMINE [Concomitant]
     Active Substance: MESALAMINE
  5. ALLOPURINOL [Concomitant]
     Active Substance: ALLOPURINOL
  6. BISOPROLOL [Concomitant]
     Active Substance: BISOPROLOL
  7. ATORVASTATIN [Concomitant]
     Active Substance: ATORVASTATIN
  8. MESALAMINE [Concomitant]
     Active Substance: MESALAMINE
  9. CLOPIDOGREL [Concomitant]
     Active Substance: CLOPIDOGREL BISULFATE
  10. OLMESARTAN [Concomitant]
     Active Substance: OLMESARTAN
  11. NIFEDIPINE [Concomitant]
     Active Substance: NIFEDIPINE
  12. OZEMPIC [Concomitant]
     Active Substance: SEMAGLUTIDE

REACTIONS (8)
  - Colitis ulcerative [Unknown]
  - Loss of therapeutic response [Not Recovered/Not Resolved]
  - Faeces soft [Unknown]
  - Diarrhoea [Unknown]
  - Productive cough [Unknown]
  - Blood glucose increased [Unknown]
  - Malaise [Unknown]
  - Asthenia [Unknown]
